FAERS Safety Report 25305088 (Version 1)
Quarter: 2025Q2

REPORT INFORMATION
  Report Type: Spontaneous
  Country: US (occurrence: None)
  Receive Date: 20250513
  Receipt Date: 20250513
  Transmission Date: 20250716
  Serious: Yes (Hospitalization)
  Sender: FDA-CTU
  Company Number: None

PATIENT
  Age: 49 Year
  Sex: Male
  Weight: 69 kg

DRUGS (1)
  1. EMPAGLIFLOZIN [Suspect]
     Active Substance: EMPAGLIFLOZIN
     Indication: Diabetes mellitus
     Dosage: FREQUENCY : DAILY;?
     Route: 048
     Dates: start: 20230518, end: 20231027

REACTIONS (11)
  - Hyperglycaemia [None]
  - Nausea [None]
  - Vomiting [None]
  - Dehydration [None]
  - Ketoacidosis [None]
  - Therapy cessation [None]
  - Euglycaemic diabetic ketoacidosis [None]
  - Lactic acidosis [None]
  - Metabolic acidosis [None]
  - Gastrointestinal wall thickening [None]
  - Enteritis [None]

NARRATIVE: CASE EVENT DATE: 20231027
